FAERS Safety Report 10201353 (Version 2)
Quarter: 2014Q2

REPORT INFORMATION
  Report Type: Spontaneous
  Country: DE (occurrence: DE)
  Receive Date: 20140528
  Receipt Date: 20140626
  Transmission Date: 20141212
  Serious: Yes (Death, Hospitalization)
  Sender: FDA-Public Use
  Company Number: DE-JNJFOC-20140510515

PATIENT
  Sex: Male

DRUGS (4)
  1. ZYTIGA [Suspect]
     Indication: PROSTATE CANCER METASTATIC
     Route: 048
     Dates: start: 20140404, end: 20140421
  2. IBUPROFEN [Concomitant]
     Dosage: MAXIMAL 800 MG
     Route: 048
  3. PARACETAMOL [Concomitant]
     Dosage: MAXIMAL 500 MG
     Route: 048
  4. ZOMETA [Concomitant]
     Route: 065
     Dates: start: 20140320

REACTIONS (1)
  - Gastric haemorrhage [Fatal]
